FAERS Safety Report 7327390-4 (Version None)
Quarter: 2011Q1

REPORT INFORMATION
  Report Type: 
  Country: None (occurrence: None)
  Receive Date: 20110302
  Receipt Date: 20110226
  Transmission Date: 20110831
  Serious: Yes (Hospitalization)
  Sender: FDA-Public Use
  Company Number: DE-BRISTOL-MYERS SQUIBB COMPANY-15561681

PATIENT
  Age: 51 Year
  Sex: Male

DRUGS (5)
  1. DOXORUBICIN [Suspect]
     Indication: B-CELL LYMPHOMA
     Dosage: DAY 1-5 SUP(2) EACH GIVEN AT DAY 1
  2. VINCRISTINE [Suspect]
     Indication: B-CELL LYMPHOMA
     Dosage: DAY 1-5
  3. CYCLOPHOSPHAMIDE [Suspect]
     Indication: B-CELL LYMPHOMA
     Dosage: ON DAY 1-5  SUP(2)
  4. PREDNISOLONE [Suspect]
     Indication: B-CELL LYMPHOMA
     Dosage: DAY 1-5  COURSES:3
  5. RITUXIMAB [Suspect]
     Indication: B-CELL LYMPHOMA
     Dosage: DAY 0 COURSES:3

REACTIONS (1)
  - COLITIS ISCHAEMIC [None]
